FAERS Safety Report 18586713 (Version 2)
Quarter: 2024Q4

REPORT INFORMATION
  Report Type: Spontaneous
  Country: GB (occurrence: GB)
  Receive Date: 20201207
  Receipt Date: 20241227
  Transmission Date: 20250115
  Serious: Yes (Other)
  Sender: GILEAD
  Company Number: GB-GILEAD-2020-0507612

PATIENT
  Age: 51 Year
  Sex: Female

DRUGS (2)
  1. YESCARTA [Suspect]
     Active Substance: AXICABTAGENE CILOLEUCEL
     Indication: B-cell lymphoma
     Dosage: UNK
     Route: 065
  2. YESCARTA [Suspect]
     Active Substance: AXICABTAGENE CILOLEUCEL
     Indication: Follicular lymphoma

REACTIONS (3)
  - Neutropenic sepsis [Recovering/Resolving]
  - Colitis [Recovering/Resolving]
  - Cytokine release syndrome [Recovering/Resolving]
